FAERS Safety Report 15365108 (Version 1)
Quarter: 2018Q4

REPORT INFORMATION
  Report Type: Spontaneous
  Country: IN (occurrence: IN)
  Receive Date: 20180910
  Receipt Date: 20180910
  Transmission Date: 20190204
  Serious: Yes (Other)
  Sender: FDA-Public Use
  Company Number: IN-VIVIMED-2017SP015313

PATIENT

DRUGS (1)
  1. AMLODIPINE [Suspect]
     Active Substance: AMLODIPINE BESYLATE
     Indication: HYPERTENSION
     Dosage: 10 MG, QD
     Route: 065

REACTIONS (10)
  - Dental plaque [Recovered/Resolved]
  - Discharge [Recovered/Resolved]
  - Discomfort [Recovered/Resolved]
  - Gingival bleeding [Recovered/Resolved]
  - Pain in jaw [Recovered/Resolved]
  - Periodontitis [Recovered/Resolved]
  - Gingival swelling [Recovered/Resolved]
  - Breath odour [Recovered/Resolved]
  - Gingival hypertrophy [Recovered/Resolved]
  - Gingival erythema [Recovered/Resolved]
